FAERS Safety Report 16533405 (Version 1)
Quarter: 2019Q3

REPORT INFORMATION
  Report Type: Spontaneous
  Country: IT (occurrence: IT)
  Receive Date: 20190705
  Receipt Date: 20190705
  Transmission Date: 20191004
  Serious: Yes (Death, Hospitalization, Other)
  Sender: FDA-Public Use
  Company Number: IT-BRACCO-2019IT03192

PATIENT
  Age: 75 Year
  Sex: Female

DRUGS (1)
  1. IOPAMIRO [Suspect]
     Active Substance: IOPAMIDOL
     Indication: ANGIOGRAM
     Dosage: 130 ML, SINGLE
     Route: 042
     Dates: start: 20190621, end: 20190621

REACTIONS (5)
  - Tachyarrhythmia [Unknown]
  - Dyspnoea [Unknown]
  - Respiratory failure [Fatal]
  - Hypotension [Unknown]
  - Dizziness [Unknown]

NARRATIVE: CASE EVENT DATE: 20190621
